FAERS Safety Report 17944739 (Version 5)
Quarter: 2021Q3

REPORT INFORMATION
  Report Type: Spontaneous
  Country: US (occurrence: US)
  Receive Date: 20200625
  Receipt Date: 20210701
  Transmission Date: 20211014
  Serious: Yes (Other)
  Sender: FDA-Public Use
  Company Number: US-GILEAD-2020-0469964

PATIENT
  Age: 54 Year
  Sex: Female
  Weight: 113.39 kg

DRUGS (35)
  1. ATRIPLA [Suspect]
     Active Substance: EFAVIRENZ\EMTRICITABINE\TENOFOVIR DISOPROXIL FUMARATE
     Indication: HIV INFECTION
     Dosage: UNK
     Route: 065
     Dates: start: 2016, end: 2016
  2. DIGOXIN. [Concomitant]
     Active Substance: DIGOXIN
  3. HEPARIN [Concomitant]
     Active Substance: HEPARIN SODIUM
  4. APTIVUS [Concomitant]
     Active Substance: TIPRANAVIR
  5. NITROGLYCERIN. [Concomitant]
     Active Substance: NITROGLYCERIN
  6. TRUVADA [Suspect]
     Active Substance: EMTRICITABINE\TENOFOVIR DISOPROXIL FUMARATE
     Indication: HIV INFECTION
     Dosage: UNK
     Route: 048
     Dates: start: 20160229, end: 20180428
  7. TYLENOL [Concomitant]
     Active Substance: ACETAMINOPHEN
  8. ALDACTONE [Concomitant]
     Active Substance: SPIRONOLACTONE
  9. ASPIRIN [ACETYLSALICYLIC ACID] [Concomitant]
     Active Substance: ASPIRIN
  10. LOVENOX [LEVOFLOXACIN] [Concomitant]
     Active Substance: LEVOFLOXACIN
  11. RETROVIR [Concomitant]
     Active Substance: ZIDOVUDINE
  12. TRUVADA [Suspect]
     Active Substance: EMTRICITABINE\TENOFOVIR DISOPROXIL FUMARATE
     Dosage: UNK
     Route: 048
     Dates: start: 20150212, end: 20150512
  13. TRUVADA [Suspect]
     Active Substance: EMTRICITABINE\TENOFOVIR DISOPROXIL FUMARATE
     Dosage: UNK
     Route: 048
     Dates: start: 20130128, end: 20141117
  14. CRESTOR [Concomitant]
     Active Substance: ROSUVASTATIN CALCIUM
  15. ACYCLOVIR [ACICLOVIR] [Concomitant]
     Active Substance: ACYCLOVIR
  16. PREZISTA [Concomitant]
     Active Substance: DARUNAVIR ETHANOLATE
  17. REYATAZ [Concomitant]
     Active Substance: ATAZANAVIR SULFATE
  18. WARFARIN [Concomitant]
     Active Substance: WARFARIN
  19. AMOXICILLIN. [Concomitant]
     Active Substance: AMOXICILLIN
  20. BACTRIM [Concomitant]
     Active Substance: SULFAMETHOXAZOLE\TRIMETHOPRIM
  21. ESOMEPRAZOLE. [Concomitant]
     Active Substance: ESOMEPRAZOLE MAGNESIUM
  22. LASIX [Concomitant]
     Active Substance: FUROSEMIDE
  23. TRUVADA [Suspect]
     Active Substance: EMTRICITABINE\TENOFOVIR DISOPROXIL FUMARATE
     Dosage: UNK
     Route: 048
     Dates: start: 20150727, end: 20160229
  24. GENVOYA [Concomitant]
     Active Substance: COBICISTAT\ELVITEGRAVIR\EMTRICITABINE\TENOFOVIR ALAFENAMIDE FUMARATE
     Indication: HIV INFECTION
  25. CARVEDILOL. [Concomitant]
     Active Substance: CARVEDILOL
  26. AMPICILLIN [Concomitant]
     Active Substance: AMPICILLIN
  27. FAMOTIDINE. [Concomitant]
     Active Substance: FAMOTIDINE
  28. NORVIR [Concomitant]
     Active Substance: RITONAVIR
  29. OMEPRAZOLE. [Concomitant]
     Active Substance: OMEPRAZOLE
  30. RANITIDINE. [Concomitant]
     Active Substance: RANITIDINE
  31. INSULIN [Concomitant]
     Active Substance: INSULIN NOS
  32. ROSUVASTATIN. [Concomitant]
     Active Substance: ROSUVASTATIN
  33. OXYBUTYNIN. [Concomitant]
     Active Substance: OXYBUTYNIN CHLORIDE
  34. ATORVASTATIN [Concomitant]
     Active Substance: ATORVASTATIN
  35. PENICILLIN NOS [Concomitant]
     Active Substance: PENICILLIN

REACTIONS (17)
  - Osteonecrosis [Not Recovered/Not Resolved]
  - Chronic kidney disease [Unknown]
  - Emotional distress [Not Recovered/Not Resolved]
  - Mood swings [Unknown]
  - Depression [Not Recovered/Not Resolved]
  - Pain [Not Recovered/Not Resolved]
  - Bone loss [Not Recovered/Not Resolved]
  - Malaise [Unknown]
  - Asthenia [Unknown]
  - Renal failure [Not Recovered/Not Resolved]
  - Osteopenia [Not Recovered/Not Resolved]
  - Anxiety [Not Recovered/Not Resolved]
  - Osteoarthritis [Unknown]
  - Anger [Unknown]
  - Quality of life decreased [Unknown]
  - Bone density decreased [Not Recovered/Not Resolved]
  - Nerve injury [Unknown]

NARRATIVE: CASE EVENT DATE: 2014
